FAERS Safety Report 23984532 (Version 1)
Quarter: 2024Q2

REPORT INFORMATION
  Report Type: Spontaneous
  Country: US (occurrence: None)
  Receive Date: 20240618
  Receipt Date: 20240618
  Transmission Date: 20240715
  Serious: Yes (Other)
  Sender: FDA-Public Use
  Company Number: 2024A135102

PATIENT
  Sex: Female

DRUGS (2)
  1. FULVESTRANT [Suspect]
     Active Substance: FULVESTRANT
     Route: 030
  2. RIBOCICLIB [Suspect]
     Active Substance: RIBOCICLIB

REACTIONS (3)
  - PIK3CA-activated mutation [Unknown]
  - Breast cancer recurrent [Unknown]
  - Disease progression [Unknown]
